FAERS Safety Report 26212890 (Version 1)
Quarter: 2025Q4

REPORT INFORMATION
  Report Type: Spontaneous
  Country: US (occurrence: US)
  Receive Date: 20251230
  Receipt Date: 20251230
  Transmission Date: 20260117
  Serious: Yes (Other)
  Sender: INSMED
  Company Number: US-INSMED, INC.-2025-08488-US

PATIENT
  Age: 94 Year
  Sex: Female

DRUGS (2)
  1. BRINSUPRI [Suspect]
     Active Substance: BRENSOCATIB
     Indication: Product used for unknown indication
     Dosage: 25 MILLIGRAM, UNK
     Route: 048
  2. LOSARTAN [Concomitant]
     Active Substance: LOSARTAN
     Indication: Hypertension
     Dosage: UNK, UNK

REACTIONS (1)
  - Blood pressure increased [Unknown]
